FAERS Safety Report 9423176 (Version 2)
Quarter: 2013Q3

REPORT INFORMATION
  Report Type: Spontaneous
  Country: BR (occurrence: None)
  Receive Date: 20130724
  Receipt Date: 20130918
  Transmission Date: 20140515
  Serious: Yes (Other)
  Sender: FDA-Public Use
  Company Number: ENT 2013-0120

PATIENT
  Age: 53 Year
  Sex: Male

DRUGS (1)
  1. COMTAN [Suspect]
     Indication: PARKINSON^S DISEASE
     Dosage: 200 MG, 4 TABLETS DAILY, ORAL
     Route: 048

REACTIONS (6)
  - Drug ineffective [None]
  - Product quality issue [None]
  - Gait disturbance [None]
  - Muscle rigidity [None]
  - Speech disorder [None]
  - Chromaturia [None]
